FAERS Safety Report 14782294 (Version 4)
Quarter: 2018Q2

REPORT INFORMATION
  Report Type: Report from Study
  Country: None (occurrence: US)
  Receive Date: 20180420
  Receipt Date: 20180525
  Transmission Date: 20180711
  Serious: Yes (Congenital Anomaly, Other)
  Sender: FDA-Public Use
  Company Number: US-ABBVIE-18P-163-2324406-00

PATIENT
  Age: 20 Year
  Sex: Female
  Weight: 49.49 kg

DRUGS (2)
  1. AMBIEN [Concomitant]
     Active Substance: ZOLPIDEM TARTRATE
     Indication: INSOMNIA
     Route: 065
  2. LUPRON DEPOT [Suspect]
     Active Substance: LEUPROLIDE ACETATE
     Indication: ENDOMETRIOSIS
     Route: 030
     Dates: start: 20160315, end: 20160513

REACTIONS (12)
  - Galactorrhoea [Not Recovered/Not Resolved]
  - Fibromyalgia [Not Recovered/Not Resolved]
  - Paraesthesia [Recovering/Resolving]
  - Hot flush [Recovered/Resolved]
  - Wheelchair user [Recovered/Resolved]
  - Blood glucose increased [Unknown]
  - Urinary tract infection [Recovered/Resolved]
  - Autonomic neuropathy [Not Recovered/Not Resolved]
  - Pain in extremity [Recovering/Resolving]
  - Pelvic pain [Not Recovered/Not Resolved]
  - Pain [Recovering/Resolving]
  - Flank pain [Recovered/Resolved]

NARRATIVE: CASE EVENT DATE: 2016
